FAERS Safety Report 9653442 (Version 1)
Quarter: 2013Q4

REPORT INFORMATION
  Report Type: Spontaneous
  Country: US (occurrence: US)
  Receive Date: 20131029
  Receipt Date: 20131029
  Transmission Date: 20140711
  Serious: Yes (Hospitalization, Other)
  Sender: FDA-Public Use
  Company Number: US-ABBVIE-13P-163-1160740-00

PATIENT
  Age: 50 Year
  Sex: Male
  Weight: 108.96 kg

DRUGS (1)
  1. ANDROGEL [Suspect]
     Indication: BLOOD TESTOSTERONE DECREASED
     Dates: start: 201306

REACTIONS (8)
  - Gallbladder enlargement [Recovered/Resolved]
  - Hepatitis [Recovered/Resolved]
  - Abdominal distension [Recovered/Resolved]
  - Weight increased [Recovered/Resolved]
  - Gastrooesophageal reflux disease [Recovered/Resolved]
  - Localised intraabdominal fluid collection [Recovered/Resolved]
  - Abdominal pain [Recovered/Resolved]
  - Breath alcohol test positive [Not Recovered/Not Resolved]
